FAERS Safety Report 4781166-0 (Version None)
Quarter: 2005Q3

REPORT INFORMATION
  Report Type: 
  Country: None (occurrence: None)
  Receive Date: 20050919
  Receipt Date: 20050915
  Transmission Date: 20060218
  Serious: Yes (Other)
  Sender: FDA-Public Use
  Company Number: HQWYE876823MAY05

PATIENT
  Age: 13 Month
  Sex: Male

DRUGS (1)
  1. BENEFIX [Suspect]
     Indication: FACTOR IX DEFICIENCY
     Dosage: 250 IU EVERY SECOND DAY; TOTAL 6 EXPOSURE DAYS
     Dates: start: 20050503, end: 20050512

REACTIONS (5)
  - ANAPHYLACTOID REACTION [None]
  - FEELING OF RELAXATION [None]
  - IMMUNE SYSTEM DISORDER [None]
  - POST PROCEDURAL COMPLICATION [None]
  - VOMITING [None]
